FAERS Safety Report 17875237 (Version 1)
Quarter: 2020Q2

REPORT INFORMATION
  Report Type: Spontaneous
  Country: AU (occurrence: AU)
  Receive Date: 20200609
  Receipt Date: 20200609
  Transmission Date: 20200714
  Serious: Yes (Hospitalization)
  Sender: FDA-Public Use
  Company Number: AU-MYLANLABS-2020M1054756

PATIENT
  Sex: Male

DRUGS (1)
  1. CLOZARIL [Suspect]
     Active Substance: CLOZAPINE
     Indication: SCHIZOPHRENIA
     Dosage: 450 MILLIGRAM
     Route: 048
     Dates: start: 20190813

REACTIONS (3)
  - Feeling abnormal [Unknown]
  - Malaise [Unknown]
  - Product dose omission [Unknown]
